FAERS Safety Report 17067271 (Version 3)
Quarter: 2019Q4

REPORT INFORMATION
  Report Type: Report from Study
  Country: US (occurrence: US)
  Receive Date: 20191122
  Receipt Date: 20191230
  Transmission Date: 20200122
  Serious: Yes (Hospitalization)
  Sender: FDA-Public Use
  Company Number: US-ACTELION-A-NJ2018-169134

PATIENT
  Sex: Female
  Weight: 86.17 kg

DRUGS (10)
  1. VELETRI [Suspect]
     Active Substance: EPOPROSTENOL
     Dosage: 30.0 NG/KG, PER MIN
     Route: 042
  2. VELETRI [Suspect]
     Active Substance: EPOPROSTENOL
     Dosage: 30.3 NG/KG, PER MIN
     Route: 042
  3. VELETRI [Suspect]
     Active Substance: EPOPROSTENOL
     Dosage: 29 NG/KG, PER MIN
     Route: 042
  4. VELETRI [Suspect]
     Active Substance: EPOPROSTENOL
     Dosage: 32.5 NG/KG, PER MIN
     Route: 042
  5. COUMADIN [Concomitant]
     Active Substance: WARFARIN SODIUM
  6. VELETRI [Suspect]
     Active Substance: EPOPROSTENOL
     Dosage: 33 NG/KG, PER MIN
     Route: 042
  7. ELIQUIS [Concomitant]
     Active Substance: APIXABAN
  8. VELETRI [Suspect]
     Active Substance: EPOPROSTENOL
     Dosage: 33 NG/KG, PER MIN
     Route: 042
  9. VELETRI [Suspect]
     Active Substance: EPOPROSTENOL
     Indication: PULMONARY ARTERIAL HYPERTENSION
     Dosage: 33 NG/KG, PER MIN
     Route: 042
  10. REVATIO [Concomitant]
     Active Substance: SILDENAFIL CITRATE

REACTIONS (33)
  - Blood iron decreased [Unknown]
  - Pain in extremity [Unknown]
  - Catheter site rash [Recovering/Resolving]
  - Abdominal discomfort [Unknown]
  - Restless legs syndrome [Unknown]
  - Vomiting [Unknown]
  - Decreased appetite [Unknown]
  - Rash [Unknown]
  - Malaise [Unknown]
  - Catheter site haemorrhage [Unknown]
  - Skin haemorrhage [Unknown]
  - Cough [Unknown]
  - Fibromyalgia [Unknown]
  - Catheter site pruritus [Not Recovered/Not Resolved]
  - Fluid retention [Unknown]
  - Dyspnoea [Unknown]
  - Pneumonia [Unknown]
  - Weight decreased [Unknown]
  - Paraesthesia [Unknown]
  - Rheumatoid arthritis [Unknown]
  - Gastric polyps [Unknown]
  - International normalised ratio increased [Unknown]
  - Fatigue [Unknown]
  - Urinary incontinence [Unknown]
  - Gastrointestinal disorder [Unknown]
  - Taste disorder [Unknown]
  - Neuropathy peripheral [Unknown]
  - Catheter site irritation [Recovering/Resolving]
  - Catheter site erythema [Not Recovered/Not Resolved]
  - Atrial fibrillation [Unknown]
  - Anticoagulation drug level increased [Unknown]
  - Diarrhoea [Unknown]
  - Pain in jaw [Unknown]
